FAERS Safety Report 4898592-1 (Version None)
Quarter: 2006Q1

REPORT INFORMATION
  Report Type: 
  Country: None (occurrence: None)
  Receive Date: 20060130
  Receipt Date: 20060116
  Transmission Date: 20060701
  Serious: Yes (Other)
  Sender: FDA-Public Use
  Company Number: 230002M06FRA

PATIENT
  Age: 53 Year
  Sex: Female
  Weight: 90 kg

DRUGS (2)
  1. REBIF [Suspect]
     Indication: MULTIPLE SCLEROSIS
     Dosage: ORAL
     Route: 048
     Dates: start: 20000101, end: 20051103
  2. LEVOTHYROXINE SODIUM [Concomitant]

REACTIONS (3)
  - LYMPHOCYTOSIS [None]
  - SARCOIDOSIS [None]
  - SPASTIC PARALYSIS [None]
